FAERS Safety Report 8122197-2 (Version None)
Quarter: 2012Q1

REPORT INFORMATION
  Report Type: 
  Country: None (occurrence: None)
  Receive Date: 20120208
  Receipt Date: 20120130
  Transmission Date: 20120608
  Serious: Yes (Hospitalization, Other)
  Sender: FDA-Public Use
  Company Number: US-BAYER-2011-071930

PATIENT
  Age: 20 Year
  Sex: Female
  Weight: 54.422 kg

DRUGS (14)
  1. YAZ [Suspect]
     Indication: PREMENSTRUAL SYNDROME
  2. LOESTRIN FE 1/20 [Concomitant]
     Dosage: DAILY
     Route: 048
  3. YAZ [Suspect]
     Indication: CONTRACEPTION
     Dosage: UNK
     Dates: start: 20090116, end: 20090828
  4. DICYCLOMINE [Concomitant]
     Dosage: 10 MG, PRN
     Route: 048
  5. ARMODAFINIL [Concomitant]
     Dosage: 150 MG, UNK
     Route: 048
  6. ZYRTEC [Concomitant]
     Indication: MULTIPLE ALLERGIES
     Dosage: UNK
     Route: 048
     Dates: start: 20020101
  7. YAZ [Suspect]
     Indication: DYSMENORRHOEA
  8. TRAMADOL HCL [Concomitant]
     Dosage: 50 MG, PRN
     Route: 048
  9. TRINESSA-28 [Concomitant]
     Indication: PREMENSTRUAL SYNDROME
  10. MACROBID [Concomitant]
     Dosage: 100 MG, BID
     Route: 048
  11. OXYCODONE HCL AND ACETAMINOPHEN [Concomitant]
     Dosage: UNK UNK, PRN
     Route: 048
  12. OMEPRAZOLE [Concomitant]
     Indication: DYSPEPSIA
     Dosage: 20 MG, DAILY
     Route: 048
     Dates: start: 20091119, end: 20091209
  13. TRINESSA-28 [Concomitant]
     Indication: CONTRACEPTION
     Dosage: DAILY
     Route: 048
     Dates: start: 20091119, end: 20091209
  14. ULTRAN [Concomitant]

REACTIONS (6)
  - URINARY TRACT INFECTION [None]
  - VULVOVAGINAL PAIN [None]
  - INJURY [None]
  - CHOLECYSTITIS CHRONIC [None]
  - PAIN [None]
  - INFECTION [None]
